FAERS Safety Report 6071576-6 (Version None)
Quarter: 2009Q1

REPORT INFORMATION
  Report Type: 
  Country: None (occurrence: None)
  Receive Date: 20090210
  Receipt Date: 20090202
  Transmission Date: 20090719
  Serious: Yes (Other)
  Sender: FDA-Public Use
  Company Number: FR-BAXTER-2009BH001834

PATIENT
  Age: 80 Year
  Sex: Male

DRUGS (2)
  1. EXTRANEAL [Suspect]
     Indication: PERITONEAL DIALYSIS
     Route: 033
     Dates: start: 20080925
  2. EXTRANEAL [Suspect]
     Route: 033
     Dates: start: 20090101, end: 20090103

REACTIONS (2)
  - PERITONITIS [None]
  - TYPE IV HYPERSENSITIVITY REACTION [None]
